FAERS Safety Report 4931094-2 (Version None)
Quarter: 2006Q1

REPORT INFORMATION
  Report Type: 
  Country: None (occurrence: None)
  Receive Date: 20060302
  Receipt Date: 20050606
  Transmission Date: 20060701
  Serious: Yes (Hospitalization)
  Sender: FDA-Public Use
  Company Number: US-MERCK-0506USA01042

PATIENT
  Age: 57 Year
  Sex: Male
  Weight: 127 kg

DRUGS (17)
  1. VIOXX [Suspect]
     Indication: ARTHRALGIA
     Route: 048
     Dates: start: 20030101, end: 20030601
  2. VIOXX [Suspect]
     Indication: ARTHRITIS
     Route: 048
     Dates: start: 20030101, end: 20030601
  3. INSULIN [Concomitant]
     Route: 065
  4. PRAVACHOL [Concomitant]
     Route: 065
  5. LIPITOR [Concomitant]
     Route: 065
  6. GEMFIBROZIL [Concomitant]
     Route: 065
  7. FOSINOPRIL SODIUM [Concomitant]
     Route: 065
  8. METOLAZONE [Concomitant]
     Route: 065
  9. LASIX [Concomitant]
     Route: 065
  10. K-DUR 10 [Concomitant]
     Route: 065
  11. DIAZEPAM [Concomitant]
     Route: 065
  12. HYDROCODONE BITARTRATE + ACETAMINOPHEN [Concomitant]
     Route: 065
  13. MONOPRIL [Concomitant]
     Route: 065
  14. COUMADIN [Concomitant]
     Route: 065
  15. ASPIRIN [Concomitant]
     Route: 065
  16. ELAVIL [Concomitant]
     Route: 065
  17. VALIUM [Concomitant]
     Route: 065

REACTIONS (23)
  - ABDOMINAL DISTENSION [None]
  - ABDOMINAL PAIN UPPER [None]
  - ANAEMIA [None]
  - ANGINA UNSTABLE [None]
  - ATRIAL FIBRILLATION [None]
  - ATRIAL FLUTTER [None]
  - BACK PAIN [None]
  - BUNDLE BRANCH BLOCK RIGHT [None]
  - CELLULITIS [None]
  - CHEST PAIN [None]
  - CORONARY ARTERY DISEASE [None]
  - CORONARY ARTERY OCCLUSION [None]
  - CORONARY ARTERY STENOSIS [None]
  - DIZZINESS [None]
  - FATIGUE [None]
  - FLANK PAIN [None]
  - GRAVITATIONAL OEDEMA [None]
  - HYPOAESTHESIA [None]
  - NAUSEA [None]
  - PENIS DISORDER [None]
  - PULMONARY HYPERTENSION [None]
  - TINNITUS [None]
  - VENTRICULAR DYSFUNCTION [None]
